FAERS Safety Report 11791527 (Version 1)
Quarter: 2015Q4

REPORT INFORMATION
  Report Type: Spontaneous
  Country: US (occurrence: None)
  Receive Date: 20151130
  Receipt Date: 20151130
  Transmission Date: 20160305
  Serious: No
  Sender: FDA-Public Use
  Company Number: None

PATIENT
  Age: 61 Year
  Sex: Male

DRUGS (1)
  1. KEPPRA [Suspect]
     Active Substance: LEVETIRACETAM
     Indication: EPILEPSY
     Route: 048

REACTIONS (8)
  - Euphoric mood [None]
  - Anger [None]
  - Balance disorder [None]
  - Arthropathy [None]
  - Diplopia [None]
  - Weight decreased [None]
  - Knee operation [None]
  - Seizure [None]

NARRATIVE: CASE EVENT DATE: 20151125
